FAERS Safety Report 16791622 (Version 2)
Quarter: 2019Q3

REPORT INFORMATION
  Report Type: Spontaneous
  Country: US (occurrence: US)
  Receive Date: 20190910
  Receipt Date: 20190910
  Transmission Date: 20191005
  Serious: Yes (Hospitalization)
  Sender: FDA-Public Use
  Company Number: US-CELGENEUS-USA-20190807850

PATIENT
  Sex: Male
  Weight: 101.7 kg

DRUGS (1)
  1. REVLIMID [Suspect]
     Active Substance: LENALIDOMIDE
     Indication: PLASMA CELL MYELOMA
     Dosage: 2.5 MILLIGRAM
     Route: 048
     Dates: start: 201906

REACTIONS (3)
  - Lung disorder [Recovered/Resolved with Sequelae]
  - Gait inability [Not Recovered/Not Resolved]
  - Lung abscess [Recovered/Resolved with Sequelae]

NARRATIVE: CASE EVENT DATE: 2019
